FAERS Safety Report 6766166-3 (Version None)
Quarter: 2010Q2

REPORT INFORMATION
  Report Type: 
  Country: None (occurrence: None)
  Receive Date: 20100611
  Receipt Date: 20100602
  Transmission Date: 20101027
  Serious: Yes (Disabling, Other)
  Sender: FDA-Public Use
  Company Number: CA-JNJFOC-20100202355

PATIENT
  Sex: Male
  Weight: 75 kg

DRUGS (2)
  1. REMICADE [Suspect]
     Indication: CROHN'S DISEASE
     Route: 042
  2. IMURAN [Concomitant]
     Dosage: 5 YEARS

REACTIONS (1)
  - PARKINSON'S DISEASE [None]
